FAERS Safety Report 8965919 (Version 1)
Quarter: 2012Q4

REPORT INFORMATION
  Report Type: 
  Country: BE (occurrence: BE)
  Receive Date: 20121217
  Receipt Date: 20121217
  Transmission Date: 20130627
  Serious: Yes (Hospitalization)
  Sender: FDA-Public Use
  Company Number: BE-AMGEN-BELSP2012080509

PATIENT
  Age: 75 Year
  Sex: Female

DRUGS (17)
  1. FILGRASTIM [Suspect]
     Indication: B-CELL LYMPHOMA
     Dosage: 6 mg, UNK
     Route: 058
     Dates: start: 20110201
  2. RITUXIMAB [Suspect]
     Dosage: UNK
     Route: 042
     Dates: start: 20110131
  3. RITUXIMAB [Suspect]
     Dosage: 750 mg, UNK
     Route: 042
     Dates: start: 20110314, end: 20110314
  4. PREDNISONE [Suspect]
     Dosage: UNK
     Route: 048
     Dates: start: 20110131
  5. PREDNISONE [Suspect]
     Dosage: 100 mg, UNK
     Route: 048
     Dates: start: 20110314, end: 20110318
  6. CYCLOPHOSPHAMIDE [Suspect]
     Indication: B-CELL LYMPHOMA
     Dosage: 1500 mg, UNK
     Route: 042
     Dates: start: 20110131
  7. CYCLOPHOSPHAMIDE [Suspect]
     Dosage: 1500 mg, UNK
     Route: 042
     Dates: start: 20110314, end: 20110314
  8. DOXORUBICIN [Suspect]
     Indication: B-CELL LYMPHOMA
     Dosage: 100 mg, UNK
     Route: 042
     Dates: start: 20110131
  9. DOXORUBICIN [Suspect]
     Dosage: 100 mg, UNK
     Route: 042
     Dates: start: 20110314, end: 20110314
  10. VINCRISTINE [Suspect]
     Indication: B-CELL LYMPHOMA
     Dosage: 2 mg, UNK
     Route: 042
     Dates: start: 20110131
  11. ZANTAC [Concomitant]
     Indication: ABDOMINAL PAIN UPPER
     Dosage: UNK
     Route: 048
  12. ZESTORETIC [Concomitant]
     Indication: HYPERTENSION
     Dosage: 12.5 g, UNK
     Route: 048
     Dates: start: 20101215, end: 20110320
  13. ACICLOVIR [Concomitant]
     Indication: ANTIVIRAL PROPHYLAXIS
     Dosage: 800 mg, UNK
     Route: 048
     Dates: start: 20110104, end: 20110320
  14. DIFLUCAN [Concomitant]
     Indication: ANTIFUNGAL PROPHYLAXIS
     Dosage: 5 cc, UNK
     Route: 048
     Dates: start: 20110104, end: 20110320
  15. CIPROXIN                           /00697201/ [Concomitant]
     Indication: ANTIBIOTIC PROPHYLAXIS
     Dosage: 1000 mg, UNK
     Route: 048
     Dates: start: 20110117, end: 20110320
  16. ALLOPURINOL [Concomitant]
     Indication: GOUT
     Dosage: 100 mg, UNK
     Route: 048
     Dates: start: 20110302, end: 20110320
  17. TRIBVIT [Concomitant]
     Dosage: UNK
     Route: 048
     Dates: start: 20110314, end: 20110320

REACTIONS (2)
  - Diarrhoea [Recovered/Resolved]
  - Deep vein thrombosis [Recovered/Resolved]
